FAERS Safety Report 6680824-0 (Version None)
Quarter: 2010Q2

REPORT INFORMATION
  Report Type: 
  Country: None (occurrence: None)
  Receive Date: 20100414
  Receipt Date: 20100412
  Transmission Date: 20101027
  Serious: Yes (Death)
  Sender: FDA-Public Use
  Company Number: US-ASTRAZENECA-2008UW22063

PATIENT
  Sex: Male

DRUGS (6)
  1. SEROQUEL [Suspect]
     Route: 048
     Dates: start: 20041220
  2. METHYLPHENIDATE [Concomitant]
     Route: 048
     Dates: start: 20020828
  3. ZYPREXA [Concomitant]
     Route: 048
     Dates: start: 20021221
  4. TRILEPTAL [Concomitant]
     Route: 048
     Dates: start: 20030225
  5. RISPERDAL [Concomitant]
     Route: 048
     Dates: start: 20030421
  6. TOPAMAX [Concomitant]
     Route: 048
     Dates: start: 20030513

REACTIONS (3)
  - DEATH [None]
  - DIABETES MELLITUS [None]
  - MULTIPLE INJURIES [None]
